FAERS Safety Report 11519143 (Version 1)
Quarter: 2015Q3

REPORT INFORMATION
  Report Type: Spontaneous
  Country: US (occurrence: US)
  Receive Date: 20150917
  Receipt Date: 20150917
  Transmission Date: 20151125
  Serious: Yes (Other)
  Sender: FDA-Public Use
  Company Number: PHHY2015US111042

PATIENT
  Age: 54 Year
  Sex: Female

DRUGS (2)
  1. AMN107 [Suspect]
     Active Substance: NILOTINIB
     Indication: CHRONIC MYELOID LEUKAEMIA
     Dosage: 400 MG, BID
     Route: 065
  2. AMN107 [Suspect]
     Active Substance: NILOTINIB
     Indication: PHILADELPHIA CHROMOSOME POSITIVE

REACTIONS (7)
  - Skin disorder [Unknown]
  - Oral lichen planus [Recovered/Resolved]
  - Dermatitis allergic [Unknown]
  - Pruritus [Not Recovered/Not Resolved]
  - Lichenoid keratosis [Recovered/Resolved]
  - Keratosis pilaris [Not Recovered/Not Resolved]
  - Rash [Unknown]
